FAERS Safety Report 9454443 (Version 2)
Quarter: 2013Q3

REPORT INFORMATION
  Report Type: Spontaneous
  Country: FR (occurrence: FR)
  Receive Date: 20130812
  Receipt Date: 20130819
  Transmission Date: 20140515
  Serious: Yes (Other)
  Sender: FDA-Public Use
  Company Number: FR-PFIZER INC-2013227177

PATIENT
  Age: 70 Year
  Sex: Male

DRUGS (10)
  1. DALACINE [Suspect]
     Indication: STAPHYLOCOCCAL INFECTION
     Dosage: 600 MG, 4X/DAY
     Route: 048
     Dates: start: 20130221, end: 20130420
  2. BACTRIM FORTE [Suspect]
     Indication: STAPHYLOCOCCAL INFECTION
     Dosage: 1 DF, 3X/DAY
     Route: 048
     Dates: start: 20130213, end: 20130420
  3. FUNGIZONE [Suspect]
     Dosage: 1 DF, 3X/DAY
     Route: 048
     Dates: start: 20130125, end: 20130420
  4. MODOPAR [Concomitant]
     Dosage: UNK
  5. AZILECT [Concomitant]
     Dosage: UNK
  6. SIFROL [Concomitant]
     Dosage: UNK
  7. DIAMICRON [Concomitant]
     Dosage: UNK
  8. JOSIR [Concomitant]
     Dosage: UNK
  9. SEROPLEX [Concomitant]
     Dosage: UNK
  10. TAHOR [Concomitant]
     Dosage: UNK

REACTIONS (1)
  - Hallucination [Unknown]
